FAERS Safety Report 20295693 (Version 1)
Quarter: 2022Q1

REPORT INFORMATION
  Report Type: Spontaneous
  Country: US (occurrence: US)
  Receive Date: 20220104
  Receipt Date: 20220104
  Transmission Date: 20220423
  Serious: No
  Sender: FDA-Public Use
  Company Number: US-COOPERSURGICAL, INC.-US-2021CPS002668

PATIENT
  Age: 23 Year
  Sex: Female
  Weight: 73.469 kg

DRUGS (4)
  1. PARAGARD T 380A [Suspect]
     Active Substance: COPPER
     Indication: Contraception
     Dosage: UNK
     Route: 015
     Dates: start: 20210409, end: 20210902
  2. ACCUTANE [Concomitant]
     Active Substance: ISOTRETINOIN
     Indication: Acne
     Route: 065
  3. PROBIOTIC                          /06395501/ [Concomitant]
     Indication: Supplementation therapy
     Route: 065
  4. DIFLUCAN [Concomitant]
     Active Substance: FLUCONAZOLE
     Indication: Product used for unknown indication
     Route: 065

REACTIONS (3)
  - Vaginal odour [Recovered/Resolved]
  - Vaginal discharge [Recovered/Resolved]
  - Device expulsion [Recovered/Resolved]

NARRATIVE: CASE EVENT DATE: 20210829
